FAERS Safety Report 17818066 (Version 1)
Quarter: 2020Q2

REPORT INFORMATION
  Report Type: Other
  Country: US (occurrence: US)
  Receive Date: 20200522
  Receipt Date: 20200522
  Transmission Date: 20200714
  Serious: No
  Sender: FDA-Public Use
  Company Number: US-LEADIANT BIOSCIENCES, INC.-2020STPI000118

PATIENT
  Sex: Male

DRUGS (15)
  1. CALCIUM [Concomitant]
     Active Substance: CALCIUM
  2. MELATONIN [Concomitant]
     Active Substance: MELATONIN
  3. ABILIFY [Concomitant]
     Active Substance: ARIPIPRAZOLE
  4. GAMMAKED [Concomitant]
     Active Substance: HUMAN IMMUNOGLOBULIN G
  5. REVCOVI [Suspect]
     Active Substance: ELAPEGADEMASE-LVLR
     Indication: COMBINED IMMUNODEFICIENCY
     Dosage: 3 ML ON MONDAY
     Route: 030
     Dates: start: 20190124
  6. AMOXICILLIN. [Concomitant]
     Active Substance: AMOXICILLIN
  7. ADVIL 12HOUR [Concomitant]
     Active Substance: IBUPROFEN
  8. REVCOVI [Suspect]
     Active Substance: ELAPEGADEMASE-LVLR
     Dosage: 4.5 MILLILITER ON WEADAY AND FRIDAY
     Dates: start: 20190124
  9. ASMANEX [Concomitant]
     Active Substance: MOMETASONE FUROATE
  10. METOPROLOL. [Concomitant]
     Active Substance: METOPROLOL
  11. VITAMINS NOS [Concomitant]
     Active Substance: VITAMINS
  12. PAXIL [Concomitant]
     Active Substance: PAROXETINE HYDROCHLORIDE
  13. BACTRIM [Concomitant]
     Active Substance: SULFAMETHOXAZOLE\TRIMETHOPRIM
  14. CUVITRU [Concomitant]
     Active Substance: HUMAN IMMUNOGLOBULIN G
  15. DEPAKOTE [Concomitant]
     Active Substance: DIVALPROEX SODIUM

REACTIONS (1)
  - Streptococcal infection [Unknown]
